FAERS Safety Report 13800672 (Version 1)
Quarter: 2017Q3

REPORT INFORMATION
  Report Type: Spontaneous
  Country: US (occurrence: US)
  Receive Date: 20170727
  Receipt Date: 20170727
  Transmission Date: 20171127
  Serious: No
  Sender: FDA-Public Use
  Company Number: US-MYLANLABS-2017M1019619

PATIENT
  Sex: Female
  Weight: 62.59 kg

DRUGS (1)
  1. LEVOTHYROXINE. [Suspect]
     Active Substance: LEVOTHYROXINE
     Indication: HYPOTHYROIDISM
     Dosage: UNK

REACTIONS (15)
  - Nasal discomfort [Unknown]
  - Pruritus [Unknown]
  - Hypoaesthesia [Unknown]
  - Dyspnoea [Unknown]
  - Nervousness [Unknown]
  - Malaise [Unknown]
  - Disturbance in attention [Unknown]
  - Chest discomfort [Unknown]
  - Head discomfort [Unknown]
  - Swelling face [Unknown]
  - Stress [Unknown]
  - Throat tightness [Unknown]
  - Heart rate increased [Unknown]
  - Headache [Unknown]
  - Insomnia [Unknown]
